FAERS Safety Report 7814022-1 (Version None)
Quarter: 2011Q4

REPORT INFORMATION
  Report Type: 
  Country: None (occurrence: None)
  Receive Date: 20111014
  Receipt Date: 20110930
  Transmission Date: 20120403
  Serious: Yes (Hospitalization)
  Sender: FDA-Public Use
  Company Number: US-BAYER-2011-015079

PATIENT
  Age: 38 Year
  Sex: Female
  Weight: 66 kg

DRUGS (11)
  1. LEVAQUIN [Concomitant]
     Indication: BRONCHITIS
     Dosage: UNK
     Route: 048
     Dates: start: 20070903, end: 20070909
  2. LEVAQUIN [Concomitant]
     Indication: PHLEBITIS
  3. TUSSIONEX [Concomitant]
     Route: 048
  4. LEVOTHYROXINE SODIUM [Concomitant]
     Indication: AUTOIMMUNE THYROIDITIS
     Dosage: 0.025 MG, UNK
     Route: 048
     Dates: start: 20000101
  5. METHYLPREDNISOLONE [Concomitant]
     Dosage: UNK
     Route: 048
     Dates: start: 20070822, end: 20070909
  6. YASMIN [Suspect]
     Indication: MENSTRUATION IRREGULAR
     Dosage: UNK
     Dates: start: 20070628, end: 20070909
  7. HEMATINIC PLUS [Concomitant]
     Indication: HAEMOLYTIC ANAEMIA
     Dosage: UNK
     Dates: start: 20060901, end: 20070901
  8. PREVACID [Concomitant]
     Indication: GASTROOESOPHAGEAL REFLUX DISEASE
     Dosage: UNK
     Route: 048
     Dates: start: 20070820, end: 20070909
  9. NU-IRON [Concomitant]
     Indication: HAEMOLYTIC ANAEMIA
     Dosage: UNK UNK, QD
     Route: 048
     Dates: start: 20061001, end: 20070901
  10. HYDROCODONE/PHENYL/D EXBROM SYRUP [Concomitant]
     Indication: BRONCHITIS
     Dosage: UNK
     Route: 048
     Dates: start: 20070906, end: 20070909
  11. ALBUTEROL [Concomitant]
     Indication: BRONCHITIS
     Dosage: UNK
     Route: 048
     Dates: start: 20070906, end: 20070909

REACTIONS (2)
  - PULMONARY EMBOLISM [None]
  - PAIN [None]
